FAERS Safety Report 6388755-0 (Version None)
Quarter: 2009Q4

REPORT INFORMATION
  Report Type: 
  Country: None (occurrence: None)
  Receive Date: 20091005
  Receipt Date: 20090605
  Transmission Date: 20100525
  Serious: Yes (Death)
  Sender: FDA-Public Use
  Company Number: US-BAYER-200922757NA

PATIENT
  Sex: Male

DRUGS (8)
  1. MAGNEVIST [Suspect]
     Indication: NUCLEAR MAGNETIC RESONANCE IMAGING
     Dates: start: 19901108, end: 19901108
  2. OMNISCAN [Suspect]
     Indication: NUCLEAR MAGNETIC RESONANCE IMAGING
     Dates: start: 20000113, end: 20000113
  3. OMNISCAN [Suspect]
     Dates: start: 20021004, end: 20021004
  4. OMNISCAN [Suspect]
     Dates: start: 20041227, end: 20041227
  5. OMNISCAN [Suspect]
     Dates: start: 20051026, end: 20051026
  6. OMNISCAN [Suspect]
     Dates: start: 20050427, end: 20050427
  7. OMNISCAN [Suspect]
     Dates: start: 20031104, end: 20031104
  8. ANALGESICS [Concomitant]
     Indication: PAIN

REACTIONS (15)
  - ACTIVITIES OF DAILY LIVING IMPAIRED [None]
  - ARTHROPATHY [None]
  - ASTHENIA [None]
  - GAIT DISTURBANCE [None]
  - MOBILITY DECREASED [None]
  - MUSCLE TIGHTNESS [None]
  - MUSCULOSKELETAL STIFFNESS [None]
  - NEPHROGENIC SYSTEMIC FIBROSIS [None]
  - PAIN [None]
  - PRURITUS [None]
  - SENSORY LOSS [None]
  - SKIN DISCOLOURATION [None]
  - SKIN DISORDER [None]
  - SKIN INDURATION [None]
  - SKIN TIGHTNESS [None]
